FAERS Safety Report 5772960-8 (Version None)
Quarter: 2008Q2

REPORT INFORMATION
  Report Type: 
  Country: None (occurrence: None)
  Receive Date: 20080611
  Receipt Date: 20080228
  Transmission Date: 20081010
  Serious: Yes (Hospitalization)
  Sender: FDA-Public Use
  Company Number: 1-15806864

PATIENT
  Age: 80 Year
  Sex: Female
  Weight: 72.5755 kg

DRUGS (2)
  1. FENTANYL [Suspect]
     Indication: FIBROMYALGIA
     Dosage: 75MCG/HR EVERY 72HRS, TRANSDERMAL
     Route: 062
     Dates: start: 20071012
  2. NUMEROUS UNSPECIFIED MEDICATIONS [Concomitant]

REACTIONS (7)
  - DISEASE COMPLICATION [None]
  - DYSPNOEA [None]
  - FIBROMYALGIA [None]
  - HYPOAESTHESIA FACIAL [None]
  - HYPOAESTHESIA ORAL [None]
  - PAIN IN EXTREMITY [None]
  - TRANSIENT ISCHAEMIC ATTACK [None]
